FAERS Safety Report 13942722 (Version 1)
Quarter: 2017Q3

REPORT INFORMATION
  Report Type: Report from Study
  Country: US (occurrence: US)
  Receive Date: 20170906
  Receipt Date: 20170906
  Transmission Date: 20171127
  Serious: Yes (Hospitalization, Other)
  Sender: FDA-Public Use
  Company Number: US-GILEAD-2017-0291857

PATIENT
  Age: 92 Year
  Sex: Male

DRUGS (1)
  1. RANOLAZINE. [Suspect]
     Active Substance: RANOLAZINE
     Indication: ANGINA PECTORIS
     Dosage: 500 MG, FREQUENCY UNKNOWN
     Route: 048
     Dates: start: 201708, end: 20170827

REACTIONS (7)
  - Heart rate decreased [Unknown]
  - Syncope [Unknown]
  - Blood electrolytes decreased [Unknown]
  - Blood potassium decreased [Recovered/Resolved]
  - Dehydration [Unknown]
  - Hyperhidrosis [Unknown]
  - Blood potassium increased [Not Recovered/Not Resolved]

NARRATIVE: CASE EVENT DATE: 201708
